FAERS Safety Report 7252378-1 (Version None)
Quarter: 2011Q1

REPORT INFORMATION
  Report Type: 
  Country: None (occurrence: None)
  Receive Date: 20110129
  Receipt Date: 20100112
  Transmission Date: 20110831
  Serious: No
  Sender: FDA-Public Use
  Company Number: US-ABBOTT-10P-163-0619494-00

PATIENT
  Sex: Female

DRUGS (13)
  1. ZOLOFT [Concomitant]
     Indication: PRODUCT USED FOR UNKNOWN INDICATION
     Dates: end: 20090901
  2. MULTIVITAMIN [Concomitant]
     Indication: PRODUCT USED FOR UNKNOWN INDICATION
     Dates: end: 20090901
  3. PREDNISONE [Concomitant]
     Indication: RHEUMATOID ARTHRITIS
     Route: 048
     Dates: start: 20090901, end: 20091001
  4. HUMIRA [Suspect]
     Indication: RHEUMATOID ARTHRITIS
     Route: 050
     Dates: start: 20090901, end: 20091001
  5. HYDROCHLOROTHIAZIDE [Suspect]
     Indication: HYPERTENSION
     Dates: start: 20090101, end: 20091001
  6. MOBIC [Concomitant]
     Indication: RHEUMATOID ARTHRITIS
     Dates: end: 20091001
  7. PREDNISONE [Concomitant]
     Indication: URTICARIA
     Route: 048
     Dates: end: 20090901
  8. HUMIRA [Suspect]
     Route: 058
     Dates: start: 20060101, end: 20090901
  9. NORVASC [Concomitant]
     Indication: HYPERTENSION
  10. METHOTREXATE [Concomitant]
     Indication: RHEUMATOID ARTHRITIS
     Dates: end: 20091001
  11. PREDNISONE [Concomitant]
     Dosage: TAPERED DOWN
     Dates: start: 20091001
  12. FOLIC ACID [Concomitant]
     Indication: PRODUCT USED FOR UNKNOWN INDICATION
  13. SINGULAIR [Concomitant]
     Indication: PRODUCT USED FOR UNKNOWN INDICATION

REACTIONS (1)
  - URTICARIA [None]
